FAERS Safety Report 7997672-1 (Version None)
Quarter: 2011Q4

REPORT INFORMATION
  Report Type: 
  Country: None (occurrence: None)
  Receive Date: 20111221
  Receipt Date: 20111214
  Transmission Date: 20120403
  Serious: Yes (Other)
  Sender: FDA-Public Use
  Company Number: US-JNJFOC-20110311745

PATIENT
  Age: 79 Year
  Sex: Female

DRUGS (1)
  1. NEOSPORIN LIP HEALTH OVERNIGHT RENEWAL THERAPY [Suspect]
     Indication: CHAPPED LIPS
     Route: 061
     Dates: start: 20110312, end: 20110321

REACTIONS (3)
  - ACCIDENTAL EXPOSURE [None]
  - ORAL MUCOSAL EXFOLIATION [None]
  - ORAL DISCOMFORT [None]
